FAERS Safety Report 7815085-X (Version None)
Quarter: 2011Q4

REPORT INFORMATION
  Report Type: 
  Country: None (occurrence: None)
  Receive Date: 20111014
  Receipt Date: 20111014
  Transmission Date: 20120403
  Serious: No
  Sender: FDA-Public Use
  Company Number: None

PATIENT
  Age: 53 Year
  Sex: Female
  Weight: 86.182 kg

DRUGS (1)
  1. PEGASYS [Suspect]

REACTIONS (5)
  - DRUG INEFFECTIVE [None]
  - MUSCLE TWITCHING [None]
  - NEUROPATHY PERIPHERAL [None]
  - MIDDLE INSOMNIA [None]
  - GAIT DISTURBANCE [None]
